FAERS Safety Report 7508828-6 (Version None)
Quarter: 2011Q2

REPORT INFORMATION
  Report Type: 
  Country: None (occurrence: None)
  Receive Date: 20110527
  Receipt Date: 20110516
  Transmission Date: 20111010
  Serious: Yes (Other)
  Sender: FDA-Public Use
  Company Number: PHHY2011US12508

PATIENT
  Sex: Male
  Weight: 83 kg

DRUGS (10)
  1. TOPROL-XL [Concomitant]
     Dosage: UNK
  2. EXJADE [Suspect]
     Indication: NEOPLASM
     Dosage: 1500 MG, DAILY
     Route: 048
     Dates: start: 20110113
  3. METOPROLOL TARTRATE [Concomitant]
     Dosage: UNK
  4. ISOSORBIDE MONONITRATE [Concomitant]
     Dosage: UNK
  5. PRAVASTATIN [Concomitant]
     Dosage: UNK
  6. FINASTERIDE [Concomitant]
     Dosage: UNK
  7. EXJADE [Suspect]
     Indication: IRON METABOLISM DISORDER
  8. DETROL [Concomitant]
     Dosage: UNK
  9. CITRACAL PLUS [Concomitant]
     Dosage: UNK
  10. MULTI-VITAMINS [Concomitant]
     Dosage: UNK

REACTIONS (3)
  - NEUTROPENIA [None]
  - THROMBOCYTOPENIA [None]
  - ANAEMIA [None]
